FAERS Safety Report 20321860 (Version 1)
Quarter: 2022Q1

REPORT INFORMATION
  Report Type: Spontaneous
  Country: US (occurrence: US)
  Receive Date: 20220111
  Receipt Date: 20220111
  Transmission Date: 20220423
  Serious: Yes (Other)
  Sender: FDA-Public Use
  Company Number: US-BAXTER-2022BAX000284

PATIENT
  Age: 51 Year
  Sex: Female

DRUGS (1)
  1. ARTISS [Suspect]
     Active Substance: FIBRINOGEN HUMAN\THROMBIN HUMAN
     Indication: Face lift
     Route: 065
     Dates: start: 20211227, end: 20211227

REACTIONS (4)
  - Necrosis [Unknown]
  - Skin exfoliation [Unknown]
  - Hypoperfusion [Unknown]
  - Hypercoagulation [Unknown]

NARRATIVE: CASE EVENT DATE: 20211201
